FAERS Safety Report 7810085-8 (Version None)
Quarter: 2011Q4

REPORT INFORMATION
  Report Type: 
  Country: None (occurrence: None)
  Receive Date: 20111007
  Receipt Date: 20110922
  Transmission Date: 20120403
  Serious: Yes (Other)
  Sender: FDA-Public Use
  Company Number: US-DEXPHARM-20111450

PATIENT
  Sex: Male
  Weight: 81 kg

DRUGS (8)
  1. CALCIUM CARBONATE [Concomitant]
  2. OMEPRAZOLE [Suspect]
     Indication: DYSPEPSIA
     Dosage: 20 MG ONCE A DAY, ORAL
     Dates: start: 20080101
  3. LEVOTHYROXINE SODIUM [Concomitant]
  4. NOVOLIN (INSULIN) [Concomitant]
  5. METOPROLOL TARTRATE [Concomitant]
  6. FISH OIL [Concomitant]
  7. SIMVASTATIN [Concomitant]
  8. EZETHIMIBE [Concomitant]

REACTIONS (1)
  - RENAL IMPAIRMENT [None]
